FAERS Safety Report 4587463-6 (Version None)
Quarter: 2005Q1

REPORT INFORMATION
  Report Type: 
  Country: None (occurrence: None)
  Receive Date: 20050215
  Receipt Date: 20050202
  Transmission Date: 20050727
  Serious: Yes (Other)
  Sender: FDA-Public Use
  Company Number: 2005026433

PATIENT
  Age: 52 Year
  Sex: Female

DRUGS (3)
  1. NORVASC [Suspect]
     Indication: HEADACHE
     Dosage: ORAL
     Route: 048
  2. SULINDAC [Suspect]
     Indication: HEADACHE
     Dosage: ORAL
     Route: 048
  3. EPERISONE HYDROCHLORIDE (EPERISONE HYDROCHLORIDE) [Concomitant]

REACTIONS (2)
  - ABDOMINAL PAIN [None]
  - RASH GENERALISED [None]
